FAERS Safety Report 25844837 (Version 1)
Quarter: 2025Q3

REPORT INFORMATION
  Report Type: Spontaneous
  Country: US (occurrence: US)
  Receive Date: 20250925
  Receipt Date: 20250925
  Transmission Date: 20251020
  Serious: No
  Sender: ELI LILLY AND COMPANY
  Company Number: US-ELI_LILLY_AND_COMPANY-US202509018863

PATIENT
  Age: 75 Year
  Sex: Female

DRUGS (1)
  1. ZEPBOUND [Suspect]
     Active Substance: TIRZEPATIDE
     Indication: Product used for unknown indication
     Route: 065

REACTIONS (5)
  - Nuchal rigidity [Recovering/Resolving]
  - Lymphadenopathy [Recovering/Resolving]
  - Infection [Unknown]
  - Neck pain [Unknown]
  - Abdominal pain upper [Unknown]
